FAERS Safety Report 10227393 (Version 2)
Quarter: 2014Q2

REPORT INFORMATION
  Report Type: Spontaneous
  Country: US (occurrence: US)
  Receive Date: 20140610
  Receipt Date: 20140620
  Transmission Date: 20141212
  Serious: No
  Sender: FDA-Public Use
  Company Number: US-PFIZER INC-2014157149

PATIENT
  Age: 61 Year
  Sex: Female
  Weight: 58.96 kg

DRUGS (7)
  1. SERTRALINE HCL [Suspect]
     Indication: DEPRESSION
     Dosage: 50 MG, UNK
     Route: 048
     Dates: start: 201406
  2. SYNTHROID [Concomitant]
     Indication: HYPOTHYROIDISM
     Dosage: 0.125 MG, UNK
  3. PRIALT [Concomitant]
     Indication: BACK PAIN
     Dosage: UNK
  4. DILAUDID [Concomitant]
     Indication: BONE PAIN
     Dosage: 1 ML, 3X/DAY
  5. DILAUDID [Concomitant]
     Indication: MYALGIA
  6. DILAUDID [Concomitant]
     Indication: NEURALGIA
  7. KLONOPIN [Concomitant]
     Dosage: UNK

REACTIONS (5)
  - Intentional product misuse [Not Recovered/Not Resolved]
  - Throat irritation [Not Recovered/Not Resolved]
  - Rhinorrhoea [Not Recovered/Not Resolved]
  - Dysphagia [Not Recovered/Not Resolved]
  - Abdominal discomfort [Not Recovered/Not Resolved]
